FAERS Safety Report 19096610 (Version 1)
Quarter: 2021Q2

REPORT INFORMATION
  Report Type: Spontaneous
  Country: US (occurrence: US)
  Receive Date: 20210405
  Receipt Date: 20210405
  Transmission Date: 20210717
  Serious: Yes (Hospitalization)
  Sender: FDA-Public Use
  Company Number: None

PATIENT
  Age: 84 Year
  Sex: Male

DRUGS (12)
  1. OMEPRAZOLE. [Concomitant]
     Active Substance: OMEPRAZOLE
  2. LOVASTATIN. [Concomitant]
     Active Substance: LOVASTATIN
  3. VITAMIN B?6 [Concomitant]
     Active Substance: PYRIDOXINE
  4. LOSARTAN. [Concomitant]
     Active Substance: LOSARTAN
  5. PYRIDIUM [Concomitant]
     Active Substance: PHENAZOPYRIDINE
  6. TAMSULOSIN [Concomitant]
     Active Substance: TAMSULOSIN
  7. COMBIGAN [Concomitant]
     Active Substance: BRIMONIDINE TARTRATE\TIMOLOL MALEATE
  8. ABIRATERONE ACETATE. [Suspect]
     Active Substance: ABIRATERONE ACETATE
     Indication: PROSTATE CANCER
     Route: 048
     Dates: start: 20201116
  9. PREDNISONE. [Concomitant]
     Active Substance: PREDNISONE
  10. VITAMIN B12 [Concomitant]
     Active Substance: CYANOCOBALAMIN
  11. DETROL [Concomitant]
     Active Substance: TOLTERODINE TARTRATE
  12. AMLODIPINE [Concomitant]
     Active Substance: AMLODIPINE BESYLATE

REACTIONS (1)
  - Pneumonia [None]

NARRATIVE: CASE EVENT DATE: 20210222
